FAERS Safety Report 8845406 (Version 1)
Quarter: 2012Q4

REPORT INFORMATION
  Report Type: Spontaneous
  Country: US (occurrence: None)
  Receive Date: 20121015
  Receipt Date: 20121015
  Transmission Date: 20130627
  Serious: Yes (Other)
  Sender: FDA-Public Use
  Company Number: 2012AP003009

PATIENT
  Sex: Female

DRUGS (1)
  1. AZELASTINE HYDROCHLORIDE [Suspect]
     Indication: DRUG USE FOR UNKNOWN INDICATION

REACTIONS (17)
  - Vertigo [None]
  - Bronchospasm [None]
  - Nasal congestion [None]
  - Dyspnoea [None]
  - Dizziness [None]
  - Cough [None]
  - Throat irritation [None]
  - Laryngitis [None]
  - Bronchitis [None]
  - Dry throat [None]
  - Eye pain [None]
  - Dry eye [None]
  - Eye irritation [None]
  - Sinusitis [None]
  - Nasal dryness [None]
  - Upper-airway cough syndrome [None]
  - Gastroenteritis [None]
